FAERS Safety Report 23894582 (Version 1)
Quarter: 2024Q2

REPORT INFORMATION
  Report Type: Spontaneous
  Country: CH (occurrence: CH)
  Receive Date: 20240524
  Receipt Date: 20240524
  Transmission Date: 20240716
  Serious: Yes (Other)
  Sender: FDA-Public Use
  Company Number: CH-BAYER-2024A068638

PATIENT
  Sex: Female

DRUGS (3)
  1. EYLEA HD [Suspect]
     Active Substance: AFLIBERCEPT
     Indication: Product used for unknown indication
     Dosage: ONCE, SOLUTION FOR INJECTION, 114.3 MG/ML
     Dates: start: 20240319, end: 20240319
  2. EYLEA HD [Suspect]
     Active Substance: AFLIBERCEPT
     Dosage: ONCE, SOLUTION FOR INJECTION, 114.3 MG/ML
     Dates: start: 20240323, end: 20240323
  3. EYLEA HD [Suspect]
     Active Substance: AFLIBERCEPT
     Dosage: 8 MG, SOLUTION FOR INJECTION, 114.3 MG/ML
     Dates: start: 20240423

REACTIONS (4)
  - Blindness [Unknown]
  - Retinal haemorrhage [Unknown]
  - Visual acuity reduced [Unknown]
  - Disease progression [Unknown]

NARRATIVE: CASE EVENT DATE: 20240423
